FAERS Safety Report 21684450 (Version 2)
Quarter: 2022Q4

REPORT INFORMATION
  Report Type: Report from Study
  Country: US (occurrence: US)
  Receive Date: 20221205
  Receipt Date: 20221209
  Transmission Date: 20230113
  Serious: Yes (Death, Other)
  Sender: FDA-Public Use
  Company Number: US-ALLERGAN-2232494US

PATIENT
  Sex: Female

DRUGS (4)
  1. ATOGEPANT [Suspect]
     Active Substance: ATOGEPANT
     Indication: Headache
     Dosage: 60 MG
     Route: 048
     Dates: start: 202210
  2. ATOGEPANT [Suspect]
     Active Substance: ATOGEPANT
     Dosage: 60 MG
     Route: 048
     Dates: start: 20220930
  3. ATOGEPANT [Suspect]
     Active Substance: ATOGEPANT
     Dosage: 30 MG
     Route: 048
     Dates: start: 2022, end: 2022
  4. HYDROCORTISONE [Concomitant]
     Active Substance: HYDROCORTISONE

REACTIONS (7)
  - Coma [Fatal]
  - Abdominal pain upper [Fatal]
  - Hypophagia [Fatal]
  - Fluid intake reduced [Fatal]
  - Headache [Fatal]
  - Intentional product misuse [Unknown]
  - Drug ineffective [Unknown]

NARRATIVE: CASE EVENT DATE: 20220101
